FAERS Safety Report 23747376 (Version 2)
Quarter: 2024Q2

REPORT INFORMATION
  Report Type: Spontaneous
  Country: VN (occurrence: VN)
  Receive Date: 20240416
  Receipt Date: 20240507
  Transmission Date: 20240716
  Serious: Yes (Life-Threatening, Hospitalization, Other)
  Sender: FDA-Public Use
  Company Number: VN-PFIZER INC-PV202400048897

PATIENT
  Age: 11 Year
  Sex: Male

DRUGS (7)
  1. LINEZOLID [Suspect]
     Active Substance: LINEZOLID
     Indication: Staphylococcal infection
     Dosage: 30 MG/KG, 1X/DAY; DEVIDED EVERY 8 HOURS(DAY5-16)
  2. CLINDAMYCIN PHOSPHATE [Suspect]
     Active Substance: CLINDAMYCIN PHOSPHATE
     Indication: Staphylococcal infection
     Dosage: 600 MG, 3X/DAY (DAY2-5)
  3. VANCOMYCIN [Suspect]
     Active Substance: VANCOMYCIN
     Indication: Staphylococcal infection
     Dosage: 600 MG/KG, 1X/DAY; DEVIDED EVERY 6 HRS (DAY0-5)
  4. OXACILLIN [Suspect]
     Active Substance: OXACILLIN SODIUM
     Indication: Staphylococcal infection
     Dosage: 200 MG/KG, 1X/DAY; DEVIDED EVERY 6 HRS (DAY2-5)
  5. MEROPENEM [Concomitant]
     Active Substance: MEROPENEM
     Indication: Staphylococcal infection
     Dosage: 120 MG/KG, 1X/DAY; DEVIDED EVERY 8 HRS(DAY0-16)
  6. METRONIDAZOLE [Concomitant]
     Active Substance: METRONIDAZOLE
     Indication: Staphylococcal infection
     Dosage: 30 MG/KG, 1X/DAY; DEVIDED EVERY 8 HR (DAY0-2)
  7. COLISTIN [Concomitant]
     Active Substance: COLISTIN
     Indication: Staphylococcal infection
     Dosage: 2.5 MIU, 3X/DAY (DAY8-16)

REACTIONS (2)
  - Drug ineffective [Recovered/Resolved]
  - Drug resistance [Recovered/Resolved]
